FAERS Safety Report 6199180-X (Version None)
Quarter: 2009Q2

REPORT INFORMATION
  Report Type: 
  Country: None (occurrence: None)
  Receive Date: 20090522
  Receipt Date: 20090406
  Transmission Date: 20091009
  Serious: No
  Sender: FDA-Public Use
  Company Number: A0777364A

PATIENT
  Sex: Male

DRUGS (2)
  1. VERAMYST [Suspect]
     Dosage: 2SPR PER DAY
     Route: 045
     Dates: start: 20090402
  2. ZYRTEC [Concomitant]

REACTIONS (1)
  - OROPHARYNGEAL PAIN [None]
